FAERS Safety Report 21596486 (Version 1)
Quarter: 2022Q4

REPORT INFORMATION
  Report Type: Report from Study
  Country: US (occurrence: US)
  Receive Date: 20221115
  Receipt Date: 20221115
  Transmission Date: 20230112
  Serious: No
  Sender: FDA-Public Use
  Company Number: US-ABBVIE-22K-163-4247323-00

PATIENT
  Sex: Male

DRUGS (1)
  1. IMBRUVICA [Suspect]
     Active Substance: IBRUTINIB
     Indication: Chronic lymphocytic leukaemia
     Route: 048
     Dates: start: 202110

REACTIONS (9)
  - Skin haemorrhage [Unknown]
  - Dysphagia [Unknown]
  - Dry skin [Unknown]
  - Skin induration [Unknown]
  - Skin fissures [Unknown]
  - Nail disorder [Unknown]
  - Gastrooesophageal reflux disease [Unknown]
  - Muscle spasms [Unknown]
  - Onychoclasis [Unknown]
